FAERS Safety Report 12223631 (Version 2)
Quarter: 2016Q2

REPORT INFORMATION
  Report Type: Spontaneous
  Country: BR (occurrence: BR)
  Receive Date: 20160330
  Receipt Date: 20160412
  Transmission Date: 20160815
  Serious: Yes (Hospitalization)
  Sender: FDA-Public Use
  Company Number: BR-SA-2016SA060276

PATIENT
  Age: 27 Year
  Sex: Male
  Weight: 60 kg

DRUGS (11)
  1. LANTUS [Suspect]
     Active Substance: INSULIN GLARGINE
     Route: 065
  2. AMPLICTIL [Concomitant]
     Active Substance: CHLORPROMAZINE HYDROCHLORIDE
     Indication: ANXIETY
     Dosage: SOMETIMES THE PATIENT TOOK INJECTABLE, BECAUSE HE WAS HOSPITALIZED
  3. NOVORAPID [Concomitant]
     Active Substance: INSULIN ASPART
     Indication: BLOOD GLUCOSE ABNORMAL
     Dosage: ACCORDING TO THE DIET/FOOD, THE PATIENT APPLIED
     Route: 058
     Dates: start: 2008
  4. BUSONID [Concomitant]
     Active Substance: BUDESONIDE
     Indication: RHINITIS ALLERGIC
     Dosage: DOSE:2 PUFF(S)
     Route: 045
     Dates: start: 2015
  5. LORATADINE. [Concomitant]
     Active Substance: LORATADINE
     Indication: RHINITIS ALLERGIC
     Route: 048
     Dates: start: 2015
  6. CARBOLITHIUM [Concomitant]
     Active Substance: LITHIUM CARBONATE
     Indication: ANXIETY
     Dosage: 2 TABLETS AT NIGHT AND 1 IN THE MORNING
     Route: 048
     Dates: start: 2015
  7. MORATUS [Concomitant]
     Indication: DEPRESSION
     Dosage: 3 TABLETS IN THE MORNING
     Route: 048
     Dates: start: 2015
  8. CLIKSTAR [Concomitant]
     Active Substance: CLIKSTAR
     Indication: DEVICE THERAPY
     Dates: start: 2014
  9. AMPLICTIL [Concomitant]
     Active Substance: CHLORPROMAZINE HYDROCHLORIDE
     Indication: ANXIETY
     Dosage: 1 IN THE MORNING, 1 IN THE AFTERNOON AND 2 AT NIGHT
     Route: 048
     Dates: start: 2015
  10. ARISTAB [Concomitant]
     Indication: ANXIETY
     Route: 048
     Dates: start: 2015
  11. LANTUS [Suspect]
     Active Substance: INSULIN GLARGINE
     Route: 058

REACTIONS (2)
  - Product use issue [Unknown]
  - Suicidal ideation [Not Recovered/Not Resolved]
